FAERS Safety Report 22797546 (Version 3)
Quarter: 2024Q1

REPORT INFORMATION
  Report Type: Spontaneous
  Country: JP (occurrence: JP)
  Receive Date: 20230808
  Receipt Date: 20240216
  Transmission Date: 20240410
  Serious: Yes (Death, Hospitalization, Other)
  Sender: FDA-Public Use
  Company Number: JP-MSD-2308JPN000252J

PATIENT
  Age: 67 Year
  Sex: Female

DRUGS (2)
  1. KEYTRUDA [Suspect]
     Active Substance: PEMBROLIZUMAB
     Indication: Clear cell endometrial carcinoma
     Dosage: UNK
     Route: 041
     Dates: start: 20220308, end: 202208
  2. LENVATINIB MESYLATE [Suspect]
     Active Substance: LENVATINIB MESYLATE
     Indication: Clear cell endometrial carcinoma
     Dosage: UNK
     Route: 048
     Dates: start: 20220308, end: 202208

REACTIONS (8)
  - Malignant neoplasm progression [Fatal]
  - Immune-mediated hypothyroidism [Unknown]
  - Interstitial lung disease [Recovering/Resolving]
  - Cardiac failure [Unknown]
  - Stomatitis [Unknown]
  - Malaise [Unknown]
  - Diarrhoea [Unknown]
  - Proteinuria [Unknown]

NARRATIVE: CASE EVENT DATE: 20220817
